FAERS Safety Report 4946001-6 (Version None)
Quarter: 2006Q1

REPORT INFORMATION
  Report Type: 
  Country: None (occurrence: None)
  Receive Date: 20060316
  Receipt Date: 20050125
  Transmission Date: 20060701
  Serious: Yes (Disabling)
  Sender: FDA-Public Use
  Company Number: NO-MERCK-0501NOR00038

PATIENT
  Age: 51 Year
  Sex: Female

DRUGS (4)
  1. VIOXX [Suspect]
     Indication: TENDON INJURY
     Route: 048
     Dates: start: 20040109, end: 20040227
  2. CELEBRA [Concomitant]
     Indication: TENDON INJURY
     Route: 048
     Dates: start: 20040227
  3. ALBYL-E [Concomitant]
     Indication: PROPHYLAXIS
     Route: 048
     Dates: start: 20041101
  4. LESCOL [Concomitant]
     Indication: HYPERCHOLESTEROLAEMIA
     Route: 048
     Dates: start: 20041101

REACTIONS (1)
  - CEREBRAL INFARCTION [None]
